FAERS Safety Report 4327610-4 (Version None)
Quarter: 2004Q1

REPORT INFORMATION
  Report Type: 
  Country: None (occurrence: None)
  Receive Date: 20040325
  Receipt Date: 20040316
  Transmission Date: 20041129
  Serious: Yes (Hospitalization)
  Sender: FDA-Public Use
  Company Number: B0326052A

PATIENT
  Age: 39 Year
  Sex: Female

DRUGS (3)
  1. ZIDOVUDINE [Suspect]
     Indication: HIV INFECTION
     Dates: start: 19980101
  2. NEVIRAPINE (FORMULATION UNKNONW) (NEVIRAPINE) [Suspect]
     Indication: HIV INFECTION
     Dates: start: 19980101
  3. NELFINAVIR MESYLATE (FORMULATION UNKNOWN) (NELFINAVIR MESYLATE) [Suspect]
     Indication: HIV INFECTION
     Dates: start: 19980101

REACTIONS (18)
  - ABDOMINAL DISCOMFORT [None]
  - ANURIA [None]
  - BLOOD CREATINE PHOSPHOKINASE INCREASED [None]
  - CARDIOGENIC SHOCK [None]
  - CARDIOPULMONARY FAILURE [None]
  - CHILLS [None]
  - DIARRHOEA [None]
  - HAEMODIALYSIS [None]
  - HEPATIC FAILURE [None]
  - LEUKOPENIA [None]
  - LIPOATROPHY [None]
  - LYMPHOCYTOSIS [None]
  - MULTI-ORGAN FAILURE [None]
  - MYOCARDITIS [None]
  - PYREXIA [None]
  - RENAL FAILURE ACUTE [None]
  - SEPTIC SHOCK [None]
  - VENTRICULAR TACHYCARDIA [None]
